FAERS Safety Report 14549328 (Version 2)
Quarter: 2018Q1

REPORT INFORMATION
  Report Type: Spontaneous
  Country: IT (occurrence: IT)
  Receive Date: 20180219
  Receipt Date: 20180301
  Transmission Date: 20180509
  Serious: Yes (Other)
  Sender: FDA-Public Use
  Company Number: IT-ACCORD-063313

PATIENT
  Age: 39 Year
  Sex: Male

DRUGS (2)
  1. CISPLATIN. [Suspect]
     Active Substance: CISPLATIN
     Indication: TONSIL CANCER
     Dosage: ON DAY ONE AND REPEATED EVERY 3 WEEKS
  2. DOCETAXEL. [Suspect]
     Active Substance: DOCETAXEL
     Indication: TONSIL CANCER
     Dosage: ON DAY ONE AND REPEATED EVERY 3 WEEKS

REACTIONS (5)
  - Alopecia [Unknown]
  - Erythema [Unknown]
  - Nausea [Unknown]
  - Neutropenia [Unknown]
  - Dysphagia [Unknown]
